FAERS Safety Report 7557806-X (Version None)
Quarter: 2011Q2

REPORT INFORMATION
  Report Type: 
  Country: None (occurrence: None)
  Receive Date: 20110620
  Receipt Date: 20110613
  Transmission Date: 20111010
  Serious: Yes (Hospitalization)
  Sender: FDA-Public Use
  Company Number: ZA-BRISTOL-MYERS SQUIBB COMPANY-14778567

PATIENT
  Age: 74 Year
  Sex: Female

DRUGS (10)
  1. CARLOC [Concomitant]
     Indication: CARDIAC FAILURE CONGESTIVE
     Route: 048
     Dates: start: 20010101
  2. LASIX [Concomitant]
     Indication: CARDIAC FAILURE CONGESTIVE
     Route: 048
     Dates: start: 20010101
  3. SLOW-K [Concomitant]
     Indication: MINERAL SUPPLEMENTATION
     Route: 048
     Dates: start: 20010101
  4. WARFARIN SODIUM [Suspect]
     Indication: THROMBOSIS PROPHYLAXIS
     Dosage: DOSE VALUE:INR ADJUSTED
     Route: 048
     Dates: start: 20090831
  5. CARLOC [Concomitant]
     Indication: HYPERTENSION
     Route: 048
     Dates: start: 20010101
  6. PLACEBO [Suspect]
     Indication: THROMBOSIS PROPHYLAXIS
     Route: 048
     Dates: start: 20090831
  7. NITROLINGUAL [Concomitant]
     Indication: MYOCARDIAL ISCHAEMIA
     Dosage: 1 DF = 1 SPRAY
     Route: 060
     Dates: start: 20090801
  8. ACETAMINOPHEN [Concomitant]
     Indication: HAEMATURIA TRAUMATIC
     Route: 048
     Dates: start: 20090902, end: 20090910
  9. HEXARONE [Concomitant]
     Indication: ATRIAL FIBRILLATION
  10. ISOSORBIDE DINITRATE [Concomitant]
     Indication: MYOCARDIAL ISCHAEMIA
     Route: 048
     Dates: start: 20010101

REACTIONS (1)
  - CELLULITIS [None]
